FAERS Safety Report 18680945 (Version 1)
Quarter: 2020Q4

REPORT INFORMATION
  Report Type: Spontaneous
  Country: US (occurrence: US)
  Receive Date: 20201230
  Receipt Date: 20201230
  Transmission Date: 20210114
  Serious: Yes (Hospitalization, Other)
  Sender: FDA-Public Use
  Company Number: US-LUPIN PHARMACEUTICALS INC.-2020-08017

PATIENT
  Age: 86 Year
  Sex: Male

DRUGS (11)
  1. LINEZOLID. [Suspect]
     Active Substance: LINEZOLID
     Indication: MYCOBACTERIUM CHELONAE INFECTION
     Dosage: 600 MILLIGRAM, QD
     Route: 048
  2. VANCOMYCIN HYDROCHLORIDE. [Suspect]
     Active Substance: VANCOMYCIN HYDROCHLORIDE
     Indication: EVIDENCE BASED TREATMENT
     Dosage: UNK
     Route: 065
  3. CEFAZOLINE [Suspect]
     Active Substance: CEFAZOLIN SODIUM
     Indication: EVIDENCE BASED TREATMENT
     Dosage: UNK
     Route: 042
  4. IMIPENEM [Concomitant]
     Active Substance: IMIPENEM
     Indication: MYCOBACTERIUM CHELONAE INFECTION
     Dosage: 500 MILLIGRAM, QID
     Route: 042
  5. AZITHROMYCIN ANHYDROUS. [Suspect]
     Active Substance: AZITHROMYCIN ANHYDROUS
     Indication: MYCOBACTERIUM CHELONAE INFECTION
     Dosage: 250 MILLIGRAM, QD
     Route: 048
  6. VANCOMYCIN HYDROCHLORIDE. [Suspect]
     Active Substance: VANCOMYCIN HYDROCHLORIDE
     Dosage: UNK
     Route: 042
  7. CEPHALEXIN. [Suspect]
     Active Substance: CEPHALEXIN
     Indication: PAIN IN EXTREMITY
     Dosage: UNK, 2 COURSES
     Route: 048
  8. CEPHALEXIN. [Suspect]
     Active Substance: CEPHALEXIN
     Indication: ERYTHEMA
  9. AMOXICILLIN + CLAVULANIC ACID [Concomitant]
     Active Substance: AMOXICILLIN\CLAVULANIC ACID
     Indication: ANTIBIOTIC THERAPY
     Dosage: UNK
     Route: 065
  10. CIPROFLOXACIN. [Suspect]
     Active Substance: CIPROFLOXACIN
     Indication: EVIDENCE BASED TREATMENT
     Dosage: UNK
     Route: 065
  11. DOXYCYCLINE. [Suspect]
     Active Substance: DOXYCYCLINE
     Indication: ANTIBIOTIC THERAPY
     Dosage: UNK
     Route: 065

REACTIONS (4)
  - Thrombocytopenia [Unknown]
  - Off label use [Unknown]
  - Therapeutic product effect decreased [Unknown]
  - Drug ineffective [Unknown]
